FAERS Safety Report 5050691-X (Version None)
Quarter: 2006Q3

REPORT INFORMATION
  Report Type: 
  Country: None (occurrence: None)
  Receive Date: 20060710
  Receipt Date: 20060627
  Transmission Date: 20061208
  Serious: Yes (Other)
  Sender: FDA-Public Use
  Company Number: 2006082170

PATIENT
  Sex: Female

DRUGS (1)
  1. SUTENT [Suspect]
     Dosage: ORAL
     Route: 048

REACTIONS (12)
  - ASTHENIA [None]
  - BLISTER [None]
  - DIARRHOEA [None]
  - EPISTAXIS [None]
  - GINGIVAL DISORDER [None]
  - HERPES ZOSTER [None]
  - IMMUNOSUPPRESSION [None]
  - OEDEMA [None]
  - ORAL INTAKE REDUCED [None]
  - SKIN EXFOLIATION [None]
  - TONGUE DISORDER [None]
  - VOMITING [None]
